FAERS Safety Report 26125178 (Version 1)
Quarter: 2025Q4

REPORT INFORMATION
  Report Type: Spontaneous
  Country: US (occurrence: US)
  Receive Date: 20251205
  Receipt Date: 20251205
  Transmission Date: 20260117
  Serious: Yes (Life-Threatening)
  Sender: MYLAN
  Company Number: US-MYLANLABS-2025M1103326

PATIENT
  Age: 42 Year
  Sex: Male

DRUGS (12)
  1. PAROXETINE [Suspect]
     Active Substance: PAROXETINE
     Indication: Schizoaffective disorder
     Dosage: UNK, STABLE DOSE; MAINTENANCE THERAPY
  2. PAROXETINE [Suspect]
     Active Substance: PAROXETINE
     Dosage: UNK, STABLE DOSE; MAINTENANCE THERAPY
     Route: 065
  3. PAROXETINE [Suspect]
     Active Substance: PAROXETINE
     Dosage: UNK, STABLE DOSE; MAINTENANCE THERAPY
     Route: 065
  4. PAROXETINE [Suspect]
     Active Substance: PAROXETINE
     Dosage: UNK, STABLE DOSE; MAINTENANCE THERAPY
  5. PALIPERIDONE [Suspect]
     Active Substance: PALIPERIDONE
     Indication: Schizoaffective disorder
     Dosage: UNK, LONG ACTING INJECTABLE
  6. PALIPERIDONE [Suspect]
     Active Substance: PALIPERIDONE
     Dosage: UNK, LONG ACTING INJECTABLE
     Route: 065
  7. PALIPERIDONE [Suspect]
     Active Substance: PALIPERIDONE
     Dosage: UNK, LONG ACTING INJECTABLE
     Route: 065
  8. PALIPERIDONE [Suspect]
     Active Substance: PALIPERIDONE
     Dosage: UNK, LONG ACTING INJECTABLE
  9. RISPERIDONE [Suspect]
     Active Substance: RISPERIDONE
     Indication: Schizoaffective disorder
     Dosage: UNK
  10. RISPERIDONE [Suspect]
     Active Substance: RISPERIDONE
     Dosage: UNK
     Route: 065
  11. RISPERIDONE [Suspect]
     Active Substance: RISPERIDONE
     Dosage: UNK
     Route: 065
  12. RISPERIDONE [Suspect]
     Active Substance: RISPERIDONE
     Dosage: UNK

REACTIONS (2)
  - Serotonin syndrome [Recovered/Resolved]
  - Product prescribing issue [Unknown]
